FAERS Safety Report 7517880-3 (Version None)
Quarter: 2011Q2

REPORT INFORMATION
  Report Type: 
  Country: None (occurrence: None)
  Receive Date: 20110602
  Receipt Date: 20101222
  Transmission Date: 20111010
  Serious: Yes (Hospitalization, Other)
  Sender: FDA-Public Use
  Company Number: US-BAYER-201038398NA

PATIENT
  Age: 34 Year
  Sex: Female
  Weight: 82.54 kg

DRUGS (15)
  1. HYDROCODONE BITARTRATE AND ACETAMINOPHEN [Concomitant]
     Dosage: UNK
     Route: 048
     Dates: start: 20071209
  2. BENZONATATE [Concomitant]
     Dosage: 100 MG, UNK
     Route: 048
     Dates: start: 20070416
  3. YAZ [Suspect]
     Indication: PRODUCT USED FOR UNKNOWN INDICATION
     Dosage: UNK
     Dates: start: 20070101, end: 20081001
  4. LORTAB [Concomitant]
     Indication: PAIN
     Dosage: UNK
     Dates: start: 20080926
  5. ASCORBIC ACID [Concomitant]
  6. PERCOCET [Concomitant]
  7. LORTAB [Concomitant]
     Indication: HEADACHE
     Dosage: UNK
     Dates: start: 20081012
  8. MEDROL [Concomitant]
     Dosage: UNK
     Dates: start: 20080926
  9. MOTRIN [Concomitant]
     Dosage: 800 MG, UNK
     Dates: start: 20061101
  10. SIMVASTATIN [Concomitant]
     Dosage: 20 MG, UNK
     Dates: start: 20081013
  11. AZITHROMYCIN [Concomitant]
     Dosage: 250 MG, UNK
     Route: 048
     Dates: start: 20070131
  12. ANTIBIOTICS [Concomitant]
  13. ADVIL LIQUI-GELS [Concomitant]
     Indication: ABDOMINAL PAIN
     Dosage: 800 MG, PRN
     Route: 048
     Dates: start: 20080721
  14. NAPROXEN (ALEVE) [Concomitant]
  15. CYCLOBENZAPRINE [Concomitant]
     Dosage: 10 MG, UNK
     Route: 048

REACTIONS (4)
  - HEADACHE [None]
  - CEREBROVASCULAR ACCIDENT [None]
  - INTRACRANIAL VENOUS SINUS THROMBOSIS [None]
  - HYPOAESTHESIA [None]
